FAERS Safety Report 6877266-1 (Version None)
Quarter: 2010Q3

REPORT INFORMATION
  Report Type: 
  Country: None (occurrence: None)
  Receive Date: 20100727
  Receipt Date: 20090814
  Transmission Date: 20110219
  Serious: No
  Sender: FDA-Public Use
  Company Number: US-ABBOTT-09P-163-0592179-00

PATIENT
  Sex: Female

DRUGS (3)
  1. SYNTHROID [Suspect]
     Indication: PRODUCT USED FOR UNKNOWN INDICATION
     Dosage: OFF AND ON
     Dates: start: 19840101
  2. SYNTHROID [Suspect]
     Dates: end: 20090701
  3. LEVOTHYROXINE SODIUM [Suspect]
     Indication: PRODUCT USED FOR UNKNOWN INDICATION
     Dosage: OFF AND ON
     Dates: start: 19840101

REACTIONS (2)
  - GENERAL SYMPTOM [None]
  - VASCULITIS [None]
